FAERS Safety Report 11597851 (Version 1)
Quarter: 2015Q3

REPORT INFORMATION
  Report Type: Spontaneous
  Country: US (occurrence: US)
  Receive Date: 20150916
  Receipt Date: 20150916
  Transmission Date: 20151125
  Serious: No
  Sender: FDA-Public Use
  Company Number: US-ELI_LILLY_AND_COMPANY-US200801001408

PATIENT
  Age: 53 Year
  Sex: Female

DRUGS (1)
  1. FORTEO [Suspect]
     Active Substance: TERIPARATIDE
     Indication: OSTEOPOROSIS
     Dosage: UNK, UNK
     Dates: start: 20071212

REACTIONS (6)
  - Hot flush [Unknown]
  - Bone pain [Unknown]
  - Malaise [Unknown]
  - Feeling cold [Unknown]
  - Pelvic pain [Unknown]
  - Cough [Unknown]

NARRATIVE: CASE EVENT DATE: 200712
